FAERS Safety Report 23154861 (Version 1)
Quarter: 2023Q4

REPORT INFORMATION
  Report Type: Spontaneous
  Country: US (occurrence: US)
  Receive Date: 20231107
  Receipt Date: 20231107
  Transmission Date: 20240109
  Serious: No
  Sender: FDA-Public Use
  Company Number: US-PFIZER INC-202300354324

PATIENT
  Age: 40 Year
  Sex: Female

DRUGS (6)
  1. PAXLOVID [Suspect]
     Active Substance: NIRMATRELVIR\RITONAVIR
     Indication: COVID-19 treatment
     Dosage: UNK
     Dates: start: 20231023, end: 20231028
  2. TYLENOL [Concomitant]
     Active Substance: ACETAMINOPHEN
     Dosage: UNK
     Dates: start: 20231023, end: 20231025
  3. ZICAM COLD REMEDY [Concomitant]
     Active Substance: HOMEOPATHICS\ZINC ACETATE\ZINC GLUCONATE
     Dosage: UNK
     Dates: start: 20231022, end: 20231023
  4. OTEZLA [Concomitant]
     Active Substance: APREMILAST
     Dosage: UNK
     Dates: start: 20230901
  5. NORA BE [Concomitant]
     Active Substance: NORETHINDRONE
     Dosage: UNK
     Dates: start: 20220701
  6. BENZONATATE [Concomitant]
     Active Substance: BENZONATATE
     Dosage: UNK
     Dates: start: 20231029

REACTIONS (2)
  - COVID-19 [Not Recovered/Not Resolved]
  - Disease recurrence [Not Recovered/Not Resolved]

NARRATIVE: CASE EVENT DATE: 20231101
